FAERS Safety Report 5334491-9 (Version None)
Quarter: 2007Q2

REPORT INFORMATION
  Report Type: 
  Country: None (occurrence: None)
  Receive Date: 20070525
  Receipt Date: 20070524
  Transmission Date: 20071010
  Serious: Yes (Hospitalization, Other)
  Sender: FDA-Public Use
  Company Number: US-BRISTOL-MYERS SQUIBB COMPANY-13759378

PATIENT
  Age: 29 Year
  Sex: Male
  Weight: 127 kg

DRUGS (6)
  1. DEFINITY [Suspect]
     Indication: ECHOCARDIOGRAM
     Route: 042
     Dates: start: 20070424
  2. COUMADIN [Concomitant]
     Route: 048
  3. METOPROLOL SUCCINATE [Concomitant]
     Route: 048
  4. MECLIZINE [Concomitant]
  5. HYOSCYAMINE [Concomitant]
     Route: 048
  6. PREVACID [Concomitant]

REACTIONS (2)
  - CHEST DISCOMFORT [None]
  - CHILLS [None]
